FAERS Safety Report 6638988-0 (Version None)
Quarter: 2010Q1

REPORT INFORMATION
  Report Type: 
  Country: None (occurrence: None)
  Receive Date: 20100316
  Receipt Date: 20100316
  Transmission Date: 20100710
  Serious: No
  Sender: FDA-Public Use
  Company Number: None

PATIENT
  Age: 56 Year
  Sex: Female
  Weight: 79.3795 kg

DRUGS (1)
  1. CLOZAPINE [Suspect]
     Dosage: 120MG DAILY PO
     Route: 048

REACTIONS (2)
  - EOSINOPHILIA [None]
  - TACHYCARDIA [None]
